FAERS Safety Report 6628246-2 (Version None)
Quarter: 2010Q1

REPORT INFORMATION
  Report Type: 
  Country: None (occurrence: None)
  Receive Date: 20100311
  Receipt Date: 20100303
  Transmission Date: 20100710
  Serious: Yes (Hospitalization)
  Sender: FDA-Public Use
  Company Number: PHHO2010DE03382

PATIENT
  Sex: Male
  Weight: 98 kg

DRUGS (2)
  1. CERTICAN [Suspect]
     Indication: HEART TRANSPLANT
     Dosage: 1.25 MG PER DAY
     Route: 048
     Dates: start: 20090216, end: 20100226
  2. NEORAL [Concomitant]
     Indication: HEART TRANSPLANT

REACTIONS (3)
  - HIP ARTHROPLASTY [None]
  - NECROSIS [None]
  - PAIN [None]
